FAERS Safety Report 9292591 (Version 2)
Quarter: 2013Q3

REPORT INFORMATION
  Report Type: Spontaneous
  Country: DE (occurrence: DE)
  Receive Date: 20130516
  Receipt Date: 20130703
  Transmission Date: 20140515
  Serious: Yes (Other)
  Sender: FDA-Public Use
  Company Number: DE-ASTRAZENECA-2013SE32730

PATIENT
  Age: 66 Year
  Sex: Male
  Weight: 83 kg

DRUGS (6)
  1. CAPRELSA [Suspect]
     Indication: MEDULLARY THYROID CANCER
     Route: 048
     Dates: start: 201210, end: 20121031
  2. CAPRELSA [Suspect]
     Indication: METASTASES TO LIVER
     Route: 048
     Dates: start: 201210, end: 20121031
  3. CAPRELSA [Suspect]
     Indication: MEDULLARY THYROID CANCER
     Route: 048
     Dates: start: 20121101, end: 20121130
  4. CAPRELSA [Suspect]
     Indication: METASTASES TO LIVER
     Route: 048
     Dates: start: 20121101, end: 20121130
  5. CAPRELSA [Suspect]
     Indication: MEDULLARY THYROID CANCER
     Route: 048
     Dates: start: 201212
  6. CAPRELSA [Suspect]
     Indication: METASTASES TO LIVER
     Route: 048
     Dates: start: 201212

REACTIONS (5)
  - Visual acuity reduced [Not Recovered/Not Resolved]
  - Coordination abnormal [Not Recovered/Not Resolved]
  - Blood calcitonin decreased [Unknown]
  - Fatigue [Not Recovered/Not Resolved]
  - Asthenia [Not Recovered/Not Resolved]
